FAERS Safety Report 26169888 (Version 1)
Quarter: 2025Q4

REPORT INFORMATION
  Report Type: Spontaneous
  Country: US (occurrence: US)
  Receive Date: 20251217
  Receipt Date: 20251217
  Transmission Date: 20260118
  Serious: Yes (Other)
  Sender: ELI LILLY AND COMPANY
  Company Number: US-ELI_LILLY_AND_COMPANY-US202512015118

PATIENT
  Age: 71 Year
  Sex: Female

DRUGS (8)
  1. KISUNLA [Suspect]
     Active Substance: DONANEMAB-AZBT
     Indication: Product used for unknown indication
     Dosage: UNK UNK, UNKNOWN
     Route: 065
  2. LEVOTHYROXINE [Concomitant]
     Active Substance: LEVOTHYROXINE
     Indication: Hypothyroidism
     Dosage: 75 UG, DAILY
     Route: 048
     Dates: start: 20250902
  3. LOTENSIN [Concomitant]
     Active Substance: BENAZEPRIL HYDROCHLORIDE
     Indication: Essential hypertension
     Dosage: 10 MG, BID
     Route: 048
     Dates: start: 20250826
  4. CRESTOR [Concomitant]
     Active Substance: ROSUVASTATIN CALCIUM
     Indication: Cardiac stress test abnormal
     Dosage: 5 MG, DAILY
     Route: 048
     Dates: start: 20250710
  5. LOPRESSOR [Concomitant]
     Active Substance: METOPROLOL TARTRATE
     Indication: Cardiac stress test abnormal
     Dosage: 50 MG, DAILY
     Route: 048
     Dates: start: 20250710
  6. MOBIC [Concomitant]
     Active Substance: MELOXICAM
     Indication: Vertebral foraminal stenosis
     Dosage: 7.5 MG, DAILY
     Route: 048
     Dates: start: 20250429
  7. NORCO [Concomitant]
     Active Substance: ACETAMINOPHEN\HYDROCODONE BITARTRATE
     Indication: Pain
     Dosage: 325MG, 5-325 MG, DAILY
     Route: 048
     Dates: start: 20250307
  8. NORVASC [Concomitant]
     Active Substance: AMLODIPINE BESYLATE
     Indication: Product used for unknown indication
     Dosage: 2.5 MG, DAILY
     Route: 048
     Dates: start: 20250529, end: 20250917

REACTIONS (3)
  - Amyloid related imaging abnormalities [Not Recovered/Not Resolved]
  - Seizure [Not Recovered/Not Resolved]
  - Aphasia [Unknown]
